FAERS Safety Report 7692459-1 (Version None)
Quarter: 2011Q3

REPORT INFORMATION
  Report Type: 
  Country: None (occurrence: None)
  Receive Date: 20110818
  Receipt Date: 20110311
  Transmission Date: 20111222
  Serious: Yes (Death)
  Sender: FDA-Public Use
  Company Number: US-GENENTECH-315088

PATIENT
  Sex: Male

DRUGS (19)
  1. BENAZEPRIL HYDROCHLORIDE [Concomitant]
     Indication: HYPERTENSION
     Dosage: 20 MG, UNK
     Dates: start: 20090108, end: 20100813
  2. LOVASTATIN [Concomitant]
     Indication: HYPERCHOLESTEROLAEMIA
     Dosage: 20 MG, UNK
     Dates: start: 20060901, end: 20100801
  3. METFORMIN [Concomitant]
     Indication: DIABETES MELLITUS
     Dosage: 500 MG, UNK
     Dates: start: 20090106, end: 20100416
  4. LIPITOR [Concomitant]
     Indication: HYPERCHOLESTEROLAEMIA
     Dosage: 80 MG, QD
     Dates: start: 20110120, end: 20110125
  5. DOXAZOSIN MESYLATE [Concomitant]
     Indication: HYPERTENSION
     Dosage: 2 MG, UNK
     Dates: start: 20090106, end: 20100813
  6. GLIMEPIRIDE [Concomitant]
     Indication: DIABETES MELLITUS
     Dosage: 4 MG, UNK
     Dates: start: 20090408, end: 20100416
  7. JANUVIA [Concomitant]
     Indication: DIABETES MELLITUS
     Dosage: 100 MG, UNK
     Dates: start: 20090110, end: 20100416
  8. LOVENOX [Concomitant]
     Indication: ANTICOAGULANT THERAPY
     Dosage: UNK
     Route: 058
     Dates: start: 20110208, end: 20110310
  9. ACTOS [Concomitant]
     Indication: DIABETES MELLITUS
     Dosage: UNK
     Dates: start: 20090408, end: 20100416
  10. GLIMEPIRIDE [Concomitant]
     Dosage: 5 MG, UNK
     Dates: start: 20070430, end: 20100416
  11. GLYBURIDE [Concomitant]
     Indication: DIABETES MELLITUS
     Dosage: 5 MG, UNK
     Dates: start: 20100416, end: 20110310
  12. SIMVASTATIN [Concomitant]
     Indication: HYPERCHOLESTEROLAEMIA
     Dosage: 20 MG, UNK
     Dates: start: 20100801, end: 20110310
  13. COREG [Concomitant]
     Indication: HYPERTENSION
     Dosage: 6.25 MG, UNK
     Dates: start: 20110124, end: 20110125
  14. RANIBIZUMAB [Suspect]
     Indication: AGE-RELATED MACULAR DEGENERATION
     Dosage: 0.05 ML, 1/MONTH
     Route: 031
     Dates: start: 20100112
  15. LANTUS [Concomitant]
     Indication: DIABETES MELLITUS
     Dosage: UNK
     Dates: start: 20100416, end: 20110310
  16. COREG [Concomitant]
     Dosage: UNK
     Dates: start: 20110208, end: 20110310
  17. FUROSEMIDE [Concomitant]
     Indication: OEDEMA
     Dosage: 20 MG, UNK
     Dates: start: 20090106, end: 20100901
  18. LISINOPRIL [Concomitant]
     Indication: HYPERTENSION
     Dosage: 20 MG, QD
     Route: 042
     Dates: start: 20100725, end: 20110310
  19. COREG [Concomitant]
     Indication: CARDIOVASCULAR DISORDER
     Dosage: 3.125 MG, UNK
     Dates: start: 20110121, end: 20110124

REACTIONS (1)
  - DEATH [None]
